FAERS Safety Report 5900915-9 (Version None)
Quarter: 2008Q3

REPORT INFORMATION
  Report Type: 
  Country: None (occurrence: None)
  Receive Date: 20080929
  Receipt Date: 20080922
  Transmission Date: 20090109
  Serious: Yes (Other)
  Sender: FDA-Public Use
  Company Number: PHEH2008US08541

PATIENT
  Sex: Male

DRUGS (1)
  1. RECLAST [Suspect]
     Dosage: UNK
     Dates: start: 20070901

REACTIONS (5)
  - GINGIVAL PAIN [None]
  - HEADACHE [None]
  - IMPAIRED HEALING [None]
  - PAIN IN JAW [None]
  - TOOTH EXTRACTION [None]
